FAERS Safety Report 8682065 (Version 3)
Quarter: 2012Q4

REPORT INFORMATION
  Report Type: 
  Country: US (occurrence: US)
  Receive Date: 20120725
  Receipt Date: 20121204
  Transmission Date: 20130627
  Serious: Yes (Hospitalization, Other)
  Sender: FDA-Public Use
  Company Number: US-GILEAD-2012-0058185

PATIENT
  Sex: Male

DRUGS (7)
  1. LETAIRIS [Suspect]
     Indication: PULMONARY HYPERTENSION
     Dosage: UNK
     Route: 048
  2. LETAIRIS [Suspect]
     Indication: HEART DISEASE CONGENITAL
  3. EPOPROSTENOL [Concomitant]
  4. LASIX                              /00032601/ [Concomitant]
  5. METOLAZONE [Concomitant]
  6. ALDACTONE                          /00006201/ [Concomitant]
  7. REVATIO [Concomitant]

REACTIONS (4)
  - Right ventricular failure [Unknown]
  - Polyuria [Unknown]
  - Catheterisation cardiac [Unknown]
  - Fluid retention [Recovering/Resolving]
